FAERS Safety Report 8502241-0 (Version None)
Quarter: 2012Q3

REPORT INFORMATION
  Report Type: 
  Country: None (occurrence: None)
  Receive Date: 20120711
  Receipt Date: 20120706
  Transmission Date: 20120928
  Serious: Yes (Other)
  Sender: FDA-Public Use
  Company Number: PHHY2012GB058199

PATIENT
  Sex: Female
  Weight: 65.31 kg

DRUGS (3)
  1. ATENOLOL [Suspect]
     Indication: MIGRAINE PROPHYLAXIS
  2. CO-TENIDONE [Concomitant]
  3. PROPRANOLOL [Suspect]
     Indication: MIGRAINE PROPHYLAXIS
     Dosage: 80 MG
     Route: 048
     Dates: start: 20111201

REACTIONS (4)
  - PRURITUS [None]
  - PAIN OF SKIN [None]
  - HYPERSENSITIVITY [None]
  - SKIN DISORDER [None]
